FAERS Safety Report 8783678 (Version 1)
Quarter: 2012Q4

REPORT INFORMATION
  Report Type: Report from Study
  Country: US (occurrence: US)
  Receive Date: 20120913
  Receipt Date: 20120913
  Transmission Date: 20130627
  Serious: No
  Sender: FDA-Public Use
  Company Number: US-VERTEX PHARMACEUTICAL INC.-AE-2012-009122

PATIENT
  Age: 41 Year
  Sex: Female

DRUGS (1)
  1. INCIVEK [Suspect]
     Indication: HEPATITIS C
     Route: 048
     Dates: start: 20120614

REACTIONS (6)
  - Visual impairment [Unknown]
  - Insomnia [Unknown]
  - Hiccups [Unknown]
  - Injection site reaction [Unknown]
  - Fatigue [Unknown]
  - Diarrhoea [Unknown]
